FAERS Safety Report 4324828-1 (Version None)
Quarter: 2004Q1

REPORT INFORMATION
  Report Type: 
  Country: None (occurrence: None)
  Receive Date: 20040323
  Receipt Date: 20040317
  Transmission Date: 20041129
  Serious: Yes (Other)
  Sender: FDA-Public Use
  Company Number: 2004-02-1887

PATIENT
  Age: 12 Year
  Sex: Male

DRUGS (1)
  1. GENTAMICIN [Suspect]
     Indication: OSTEOMYELITIS
     Dosage: 60 MG BID INTRAMUSCULAR
     Route: 030
     Dates: start: 19760701, end: 19761101

REACTIONS (15)
  - BLOOD BICARBONATE INCREASED [None]
  - BLOOD PARATHYROID HORMONE DECREASED [None]
  - HYPOCALCAEMIA [None]
  - HYPOKALAEMIA [None]
  - HYPOMAGNESAEMIA [None]
  - MALAISE [None]
  - PAIN IN EXTREMITY [None]
  - PROTEINURIA [None]
  - RED BLOOD CELLS URINE [None]
  - RENAL SALT-WASTING SYNDROME [None]
  - RENAL TUBULAR DISORDER [None]
  - TETANY [None]
  - URINARY CASTS [None]
  - VOMITING [None]
  - WHITE BLOOD CELLS URINE POSITIVE [None]
